FAERS Safety Report 17434242 (Version 3)
Quarter: 2020Q2

REPORT INFORMATION
  Report Type: Spontaneous
  Country: US (occurrence: US)
  Receive Date: 20200219
  Receipt Date: 20200430
  Transmission Date: 20200713
  Serious: No
  Sender: FDA-Public Use
  Company Number: US-PFIZER INC-2020069826

PATIENT
  Age: 37 Year
  Sex: Female

DRUGS (1)
  1. XELJANZ [Suspect]
     Active Substance: TOFACITINIB CITRATE
     Indication: COLITIS ULCERATIVE
     Dosage: 5 MG, 2X/DAY
     Route: 048
     Dates: start: 201909, end: 20200313

REACTIONS (6)
  - Gastrooesophageal reflux disease [Recovered/Resolved]
  - Herpes zoster [Unknown]
  - Dysphagia [Recovered/Resolved]
  - Diarrhoea [Unknown]
  - Chest pain [Recovered/Resolved]
  - Nasopharyngitis [Unknown]
